FAERS Safety Report 6133374-4 (Version None)
Quarter: 2009Q1

REPORT INFORMATION
  Report Type: 
  Country: None (occurrence: None)
  Receive Date: 20090326
  Receipt Date: 20090316
  Transmission Date: 20090719
  Serious: Yes (Death)
  Sender: FDA-Public Use
  Company Number: CA-ELI_LILLY_AND_COMPANY-CA200903004113

PATIENT
  Age: 73 Year
  Sex: Female

DRUGS (5)
  1. FORTEO [Suspect]
     Indication: OSTEOPOROSIS
     Dosage: 20 UG, DAILY (1/D)
     Route: 058
     Dates: start: 20070510
  2. VITALUX [Concomitant]
  3. CALCITE [Concomitant]
  4. SYNTHROID [Concomitant]
  5. IMODIUM [Concomitant]

REACTIONS (1)
  - DEATH [None]
